FAERS Safety Report 23094265 (Version 3)
Quarter: 2023Q4

REPORT INFORMATION
  Report Type: Other
  Country: US (occurrence: None)
  Receive Date: 20231023
  Receipt Date: 20231115
  Transmission Date: 20240110
  Serious: Yes (Other)
  Sender: FDA-Public Use
  Company Number: US-ROCHE-3440609

PATIENT
  Age: 62 Year
  Sex: Female

DRUGS (6)
  1. OCREVUS [Suspect]
     Active Substance: OCRELIZUMAB
     Indication: Multiple sclerosis
     Dosage: LAST OCREVUS DOSE ON /APR/2023
     Route: 042
     Dates: start: 2022
  2. AMANTADINE [Concomitant]
     Active Substance: AMANTADINE
  3. LOSARTAN [Concomitant]
     Active Substance: LOSARTAN
  4. OXYBUTYNIN [Concomitant]
     Active Substance: OXYBUTYNIN
  5. TYLENOL [Concomitant]
     Active Substance: ACETAMINOPHEN
  6. XANAX [Concomitant]
     Active Substance: ALPRAZOLAM

REACTIONS (3)
  - Herpes zoster [Recovered/Resolved]
  - Magnetic resonance imaging head abnormal [Recovered/Resolved]
  - JC polyomavirus test positive [Recovered/Resolved]

NARRATIVE: CASE EVENT DATE: 20230901
